FAERS Safety Report 9725304 (Version 1)
Quarter: 2013Q4

REPORT INFORMATION
  Report Type: Report from Study
  Country: US (occurrence: US)
  Receive Date: 20131203
  Receipt Date: 20131203
  Transmission Date: 20140711
  Serious: Yes (Death)
  Sender: FDA-Public Use
  Company Number: US-ROCHE-1313196

PATIENT
  Sex: Male

DRUGS (2)
  1. AVASTIN [Suspect]
     Indication: GASTROINTESTINAL CARCINOMA
     Route: 065
  2. SANDOSTATIN [Concomitant]

REACTIONS (1)
  - Death [Fatal]
